FAERS Safety Report 10070051 (Version 2)
Quarter: 2014Q2

REPORT INFORMATION
  Report Type: Spontaneous
  Country: JP (occurrence: None)
  Receive Date: 20140408
  Receipt Date: 20140506
  Transmission Date: 20141212
  Serious: Yes (Other)
  Sender: FDA-Public Use
  Company Number: SP07671

PATIENT
  Sex: Male

DRUGS (1)
  1. MOVIPREP (SOLUTION) [Suspect]
     Indication: BOWEL PREPARATION
     Dosage: (1 LIT ) , ORAL
     Route: 048
     Dates: start: 20140318, end: 20140318

REACTIONS (4)
  - Dehydration [None]
  - Hypoglycaemia [None]
  - Altered state of consciousness [None]
  - Blood pressure decreased [None]
